FAERS Safety Report 18810631 (Version 1)
Quarter: 2021Q1

REPORT INFORMATION
  Report Type: Spontaneous
  Country: US (occurrence: US)
  Receive Date: 20210129
  Receipt Date: 20210129
  Transmission Date: 20210419
  Serious: Yes (Hospitalization, Other)
  Sender: FDA-Public Use
  Company Number: US-009507513-2101USA012479

PATIENT
  Age: 79 Year
  Sex: Female

DRUGS (10)
  1. CIPROFLOXACIN. [Concomitant]
     Active Substance: CIPROFLOXACIN
     Indication: URINARY TRACT INFECTION BACTERIAL
  2. METHADONE HYDROCHLORIDE. [Concomitant]
     Active Substance: METHADONE HYDROCHLORIDE
     Route: 037
  3. DICLOXACILLIN [Concomitant]
     Active Substance: DICLOXACILLIN
     Indication: URINARY TRACT INFECTION BACTERIAL
  4. ZOLPIDEM [Concomitant]
     Active Substance: ZOLPIDEM TARTRATE
     Route: 037
  5. KEYTRUDA [Suspect]
     Active Substance: PEMBROLIZUMAB
     Indication: METASTATIC MALIGNANT MELANOMA
     Dosage: 200 MILLIGRAM, Q3W
     Route: 042
  6. ROSUVASTATIN. [Concomitant]
     Active Substance: ROSUVASTATIN
     Route: 037
  7. MIRTAZAPINE. [Concomitant]
     Active Substance: MIRTAZAPINE
     Route: 037
  8. OMEPRAZOLE. [Concomitant]
     Active Substance: OMEPRAZOLE
     Dosage: STARTED 6 MONTHS AGO
     Route: 037
  9. KEYTRUDA [Suspect]
     Active Substance: PEMBROLIZUMAB
     Indication: METASTASES TO MUSCLE
  10. GLIPIZIDE. [Concomitant]
     Active Substance: GLIPIZIDE
     Route: 037

REACTIONS (3)
  - Antineutrophil cytoplasmic antibody positive [Recovered/Resolved]
  - Tubulointerstitial nephritis [Recovered/Resolved]
  - Nephropathy toxic [Recovered/Resolved]
